FAERS Safety Report 6704357-8 (Version None)
Quarter: 2010Q2

REPORT INFORMATION
  Report Type: 
  Country: None (occurrence: None)
  Receive Date: 20100430
  Receipt Date: 20100426
  Transmission Date: 20101027
  Serious: Yes (Death)
  Sender: FDA-Public Use
  Company Number: JP-MERCK-1004USA04251

PATIENT
  Age: 90 Year
  Sex: Male

DRUGS (6)
  1. STROMECTOL [Suspect]
     Indication: ACARODERMATITIS
     Route: 048
     Dates: start: 20100301, end: 20100301
  2. STROMECTOL [Suspect]
     Route: 048
     Dates: start: 20100407, end: 20100407
  3. BUFFERIN [Concomitant]
     Route: 048
     Dates: start: 20100301
  4. CONSTAN [Concomitant]
     Route: 048
     Dates: start: 20100301
  5. ASEMIPEARL [Concomitant]
     Route: 048
     Dates: start: 20100301
  6. EURAX [Concomitant]
     Indication: ACARODERMATITIS
     Route: 061
     Dates: start: 20100301

REACTIONS (4)
  - BLOOD CREATININE INCREASED [None]
  - BLOOD UREA INCREASED [None]
  - MULTI-ORGAN FAILURE [None]
  - WHITE BLOOD CELL COUNT INCREASED [None]
